FAERS Safety Report 20935762 (Version 2)
Quarter: 2022Q2

REPORT INFORMATION
  Report Type: Spontaneous
  Country: NL (occurrence: NL)
  Receive Date: 20220609
  Receipt Date: 20220623
  Transmission Date: 20220721
  Serious: Yes (Other)
  Sender: FDA-Public Use
  Company Number: NL-TEVA-2022-NL-2043497

PATIENT
  Age: 74 Year
  Sex: Male

DRUGS (2)
  1. PREDNISOLONE [Suspect]
     Active Substance: PREDNISOLONE
     Indication: Pyoderma gangrenosum
     Dosage: 1 MG/KG
     Route: 050
  2. CLOBETASOL [Suspect]
     Active Substance: CLOBETASOL
     Indication: Pyoderma gangrenosum
     Dosage: 0.5 MG/G
     Route: 050

REACTIONS (4)
  - Klebsiella infection [Recovered/Resolved]
  - Herpes simplex [Unknown]
  - Steroid diabetes [Unknown]
  - Drug ineffective [Unknown]
